FAERS Safety Report 25490826 (Version 2)
Quarter: 2025Q2

REPORT INFORMATION
  Report Type: Spontaneous
  Country: US (occurrence: US)
  Receive Date: 20250627
  Receipt Date: 20250630
  Transmission Date: 20250717
  Serious: Yes (Hospitalization)
  Sender: DOMPE FARMACEUTICI
  Company Number: US-FARMAPROD-202506-2055

PATIENT
  Age: 55 Year
  Sex: Female

DRUGS (18)
  1. OXERVATE [Suspect]
     Active Substance: CENEGERMIN-BKBJ
     Indication: Neurotrophic keratopathy
     Route: 047
     Dates: start: 20250501
  2. REFRESH CLASSIC [Concomitant]
     Active Substance: POLYVINYL ALCOHOL\POVIDONE
  3. ESZOPICLONE [Concomitant]
     Active Substance: ESZOPICLONE
  4. LINZESS [Concomitant]
     Active Substance: LINACLOTIDE
  5. OMEPRAZOLE [Concomitant]
     Active Substance: OMEPRAZOLE
  6. PRIMIDONE [Concomitant]
     Active Substance: PRIMIDONE
  7. ACETAZOLAMIDE [Concomitant]
     Active Substance: ACETAZOLAMIDE
  8. GABAPENTIN [Concomitant]
     Active Substance: GABAPENTIN
  9. PROPRANOLOL HYDROCHLORIDE [Concomitant]
     Active Substance: PROPRANOLOL HYDROCHLORIDE
  10. PROGESTERONE [Concomitant]
     Active Substance: PROGESTERONE
  11. MYRBETRIQ [Concomitant]
     Active Substance: MIRABEGRON
  12. ZINC [Concomitant]
     Active Substance: ZINC
  13. VITAMIN D3 [Concomitant]
     Active Substance: CHOLECALCIFEROL
  14. DULOXETINE HYDROCHLORIDE [Concomitant]
     Active Substance: DULOXETINE HYDROCHLORIDE
  15. LIOTHYRONINE SODIUM [Concomitant]
     Active Substance: LIOTHYRONINE SODIUM
  16. QULIPTA [Concomitant]
     Active Substance: ATOGEPANT
  17. LEVOTHYROXINE SODIUM [Concomitant]
     Active Substance: LEVOTHYROXINE SODIUM
  18. ARMODAFINIL [Concomitant]
     Active Substance: ARMODAFINIL

REACTIONS (2)
  - Foot deformity [Recovering/Resolving]
  - Underdose [Unknown]

NARRATIVE: CASE EVENT DATE: 20250513
